FAERS Safety Report 4423548-2 (Version None)
Quarter: 2004Q3

REPORT INFORMATION
  Report Type: 
  Country: None (occurrence: None)
  Receive Date: 20040805
  Receipt Date: 20040720
  Transmission Date: 20050211
  Serious: Yes (Hospitalization, Other)
  Sender: FDA-Public Use
  Company Number: FR-JNJFOC-20040603097

PATIENT
  Age: 61 Year
  Sex: Male
  Weight: 80 kg

DRUGS (8)
  1. REMICADE [Suspect]
     Indication: RHEUMATOID ARTHRITIS
     Dosage: SEE IMAGE
     Route: 042
     Dates: start: 20030801
  2. REMICADE [Suspect]
     Indication: RHEUMATOID ARTHRITIS
     Dosage: SEE IMAGE
     Route: 042
     Dates: start: 20040225
  3. REMICADE [Suspect]
     Indication: RHEUMATOID ARTHRITIS
     Dosage: SEE IMAGE
     Route: 042
     Dates: start: 20040427
  4. AZATHIOPRINE [Concomitant]
  5. CACIT VIT D3 (LEVOVIT CA) [Concomitant]
  6. DIFFU K (POTASSIUM CHLORIDE) TABLETS [Concomitant]
  7. PREVISCAN (FLUINDIONE) [Concomitant]
  8. INIPOMP (PANTOPRAZOLE) CAPSULES [Concomitant]

REACTIONS (5)
  - ANTINUCLEAR ANTIBODY POSITIVE [None]
  - CRYOGLOBULINS PRESENT [None]
  - LABORATORY TEST ABNORMAL [None]
  - PEMPHIGUS [None]
  - THERAPEUTIC RESPONSE DECREASED [None]
